FAERS Safety Report 19439388 (Version 1)
Quarter: 2021Q2

REPORT INFORMATION
  Report Type: Spontaneous
  Country: JP (occurrence: JP)
  Receive Date: 20210619
  Receipt Date: 20210619
  Transmission Date: 20210717
  Serious: Yes (Hospitalization, Other)
  Sender: FDA-Public Use
  Company Number: JP-B.I. PHARMACEUTICALS,INC./RIDGEFIELD-2021-BI-108908

PATIENT
  Age: 65 Year
  Sex: Female
  Weight: 55.9 kg

DRUGS (1)
  1. JARDIANCE [Suspect]
     Active Substance: EMPAGLIFLOZIN
     Indication: TYPE 2 DIABETES MELLITUS

REACTIONS (3)
  - Adrenal neoplasm [Recovering/Resolving]
  - Hyperplasia adrenal [Recovering/Resolving]
  - Adrenal cyst [Recovering/Resolving]
